FAERS Safety Report 8792884 (Version 1)
Quarter: 2012Q4

REPORT INFORMATION
  Report Type: 
  Country: US (occurrence: US)
  Receive Date: 20120918
  Receipt Date: 20120918
  Transmission Date: 20130627
  Serious: No
  Sender: FDA-Public Use
  Company Number: US-ASTRAZENECA-2012SE70271

PATIENT
  Age: 5 Year
  Sex: Male
  Weight: 21.8 kg

DRUGS (3)
  1. SYMBICORT [Suspect]
     Indication: ASTHMA
     Dosage: 160/4.5 TWO PUFFS TWO TIMES A DAY
     Route: 055
     Dates: start: 201109, end: 20120817
  2. ZYRTEC [Concomitant]
     Indication: ASTHMA
  3. SLUCONAZOLE [Concomitant]
     Indication: CANDIDIASIS

REACTIONS (3)
  - Dysphonia [Recovering/Resolving]
  - Candidiasis [Unknown]
  - Off label use [Unknown]
